FAERS Safety Report 5335143-1 (Version None)
Quarter: 2007Q2

REPORT INFORMATION
  Report Type: 
  Country: None (occurrence: None)
  Receive Date: 20070525
  Receipt Date: 20070524
  Transmission Date: 20071010
  Serious: Yes (Other)
  Sender: FDA-Public Use
  Company Number: DE-MERCK-0705DEU00116

PATIENT
  Age: 79 Year
  Sex: Female

DRUGS (2)
  1. HYZAAR [Suspect]
     Route: 048
     Dates: start: 20070301
  2. ANTIMICROBIAL (UNSPECIFIED) [Concomitant]
     Route: 065

REACTIONS (3)
  - PALATAL OEDEMA [None]
  - PHARYNGEAL OEDEMA [None]
  - SWOLLEN TONGUE [None]
